FAERS Safety Report 13558650 (Version 2)
Quarter: 2017Q2

REPORT INFORMATION
  Report Type: Spontaneous
  Country: FR (occurrence: FR)
  Receive Date: 20170518
  Receipt Date: 20170621
  Transmission Date: 20170830
  Serious: Yes (Hospitalization, Other)
  Sender: FDA-Public Use
  Company Number: FR-PFIZER INC-2017211608

PATIENT
  Age: 63 Year
  Sex: Male

DRUGS (14)
  1. ZARZIO [Suspect]
     Active Substance: FILGRASTIM
     Dosage: 1 DF (INJECTION), DAILY
     Route: 058
     Dates: start: 20170412, end: 20170417
  2. METHYLPREDNISOLONE MYLAN /00049602/ [Suspect]
     Active Substance: METHYLPREDNISOLONE SODIUM SUCCINATE
     Dosage: UNK
     Route: 042
     Dates: start: 20170407
  3. DOLIPRANE [Concomitant]
     Active Substance: ACETAMINOPHEN
     Indication: PAIN
     Dosage: 500 MG, AS NEEDED
  4. INNOHEP [Suspect]
     Active Substance: TINZAPARIN SODIUM
     Dosage: 0.8 ML, 1X/DAY
     Route: 058
     Dates: start: 20170406, end: 20170414
  5. PIPERACILLIN AND TAZOBACTAM [Suspect]
     Active Substance: PIPERACILLIN SODIUM\TAZOBACTAM SODIUM
     Dosage: 4 DF (INJECTIONS), DAILY
     Route: 042
     Dates: start: 20170406, end: 20170415
  6. FIRMAGON [Concomitant]
     Active Substance: DEGARELIX ACETATE
     Dosage: UNK
     Dates: start: 20170403
  7. ACTISKENAN [Concomitant]
     Active Substance: MORPHINE SULFATE
     Indication: PAIN
     Dosage: 10 MG, AS NEEDED
  8. PRIMPERAN [Concomitant]
     Active Substance: METOCLOPRAMIDE HYDROCHLORIDE
     Indication: VOMITING
  9. CIPROFLOXACINE ARROW [Suspect]
     Active Substance: CIPROFLOXACIN
     Dosage: 500 MG, 2X/DAY
     Route: 048
     Dates: start: 20170408, end: 20170416
  10. PRIMPERAN [Concomitant]
     Active Substance: METOCLOPRAMIDE HYDROCHLORIDE
     Indication: NAUSEA
     Dosage: UNK, AS NEEDED
  11. DOCETAXEL HOSPIRA [Suspect]
     Active Substance: DOCETAXEL
     Dosage: 150 MG, SINGLE
     Route: 042
     Dates: start: 20170412, end: 20170412
  12. AMIODARONE [Concomitant]
     Active Substance: AMIODARONE
     Dosage: 200 MG, 1X/DAY
  13. ZOLEDRONIC ACID [Concomitant]
     Active Substance: ZOLEDRONIC ACID
     Dosage: UNK
     Dates: start: 20170404
  14. DUROGESIC [Concomitant]
     Active Substance: FENTANYL
     Dosage: 50 UG (1 PATCH), EVERY 72 HOURS

REACTIONS (4)
  - Haemorrhagic anaemia [Recovered/Resolved]
  - Gastrointestinal inflammation [Unknown]
  - Ischaemic stroke [Unknown]
  - Gastrointestinal haemorrhage [Recovering/Resolving]

NARRATIVE: CASE EVENT DATE: 20170414
